FAERS Safety Report 10152932 (Version 1)
Quarter: 2014Q2

REPORT INFORMATION
  Report Type: Spontaneous
  Country: FR (occurrence: FR)
  Receive Date: 20140505
  Receipt Date: 20140505
  Transmission Date: 20141212
  Serious: Yes (Hospitalization)
  Sender: FDA-Public Use
  Company Number: FR-GLAXOSMITHKLINE-B0989897A

PATIENT
  Age: 21 Year
  Sex: Male

DRUGS (7)
  1. REVOLADE [Suspect]
     Indication: THROMBOCYTOPENIA
     Dosage: 75MG SEE DOSAGE TEXT
     Route: 048
     Dates: start: 201212, end: 201404
  2. MINIRIN [Concomitant]
     Route: 065
  3. EPOETIN ALFA [Concomitant]
     Route: 065
     Dates: start: 201212
  4. GRANULOCYTE COLONY-STIMULATING FACTOR NOS [Concomitant]
     Route: 065
     Dates: start: 201212
  5. LEVOTHYROX [Concomitant]
     Route: 065
  6. HYDROCORTISONE [Concomitant]
     Route: 065
  7. FLUDROCORTISONE [Concomitant]
     Route: 065

REACTIONS (2)
  - Venous thrombosis [Not Recovered/Not Resolved]
  - Off label use [Unknown]
